FAERS Safety Report 9600547 (Version 1)
Quarter: 2013Q4

REPORT INFORMATION
  Report Type: Spontaneous
  Country: US (occurrence: US)
  Receive Date: 20131004
  Receipt Date: 20131004
  Transmission Date: 20140711
  Serious: No
  Sender: FDA-Public Use
  Company Number: US-AMGEN-USASP2013035977

PATIENT
  Age: 70 Year
  Sex: Female
  Weight: 78 kg

DRUGS (3)
  1. ENBREL [Suspect]
     Indication: RHEUMATOID ARTHRITIS
     Dosage: 50 MG, QWK
     Route: 058
  2. ENBREL [Suspect]
     Indication: PSORIASIS
  3. BABY ASPIRIN [Concomitant]
     Dosage: UNK

REACTIONS (2)
  - Increased tendency to bruise [Not Recovered/Not Resolved]
  - Injection site bruising [Not Recovered/Not Resolved]
